FAERS Safety Report 8252597-1 (Version None)
Quarter: 2012Q2

REPORT INFORMATION
  Report Type: 
  Country: None (occurrence: None)
  Receive Date: 20120402
  Receipt Date: 20111110
  Transmission Date: 20120825
  Serious: No
  Sender: FDA-Public Use
  Company Number: US-ABBOTT-11P-163-0873556-00

PATIENT
  Sex: Male
  Weight: 82.628 kg

DRUGS (5)
  1. ANDROGEL [Suspect]
     Dosage: 3 PUMPS PER DAY
     Dates: start: 20110830
  2. UNKNOWN MEDICATION [Concomitant]
     Indication: THYROID DISORDER
  3. ANDROGEL [Suspect]
     Dosage: 4 PUMPS PER DAY
     Dates: start: 20100301
  4. ANDROGEL [Suspect]
     Indication: BLOOD TESTOSTERONE DECREASED
     Dosage: 4 PUMPS PER DAY
     Dates: start: 20110101
  5. ANDROGEL [Suspect]
     Indication: BLOOD TESTOSTERONE DECREASED
     Dosage: 6 PUMPS PER DAY
     Dates: start: 20100101, end: 20110101

REACTIONS (7)
  - POOR QUALITY DRUG ADMINISTERED [None]
  - INCORRECT STORAGE OF DRUG [None]
  - ASTHENIA [None]
  - MALAISE [None]
  - DECREASED ACTIVITY [None]
  - DRUG INEFFECTIVE [None]
  - BLOOD TESTOSTERONE DECREASED [None]
